FAERS Safety Report 22637781 (Version 1)
Quarter: 2023Q2

REPORT INFORMATION
  Report Type: Spontaneous
  Country: US (occurrence: None)
  Receive Date: 20230623
  Receipt Date: 20230623
  Transmission Date: 20230721
  Serious: Yes (Hospitalization)
  Sender: FDA-Public Use
  Company Number: None

PATIENT
  Age: 69 Year
  Sex: Female
  Weight: 50.2 kg

DRUGS (4)
  1. OLMESARTAN [Suspect]
     Active Substance: OLMESARTAN
     Indication: Hypertension
     Dosage: FREQUENCY : DAILY;?
     Route: 048
  2. amlodipine 5 mg PO daily [Concomitant]
  3. atorvastatin 10 mg PO qhs [Concomitant]
  4. omeprazole 20 mg PO daily [Concomitant]

REACTIONS (9)
  - Asthenia [None]
  - Diarrhoea [None]
  - Muscle spasms [None]
  - Weight decreased [None]
  - Fear of eating [None]
  - Acute kidney injury [None]
  - Acidosis [None]
  - Stomach mass [None]
  - Refusal of examination [None]

NARRATIVE: CASE EVENT DATE: 20230429
